FAERS Safety Report 4736123-7 (Version None)
Quarter: 2005Q3

REPORT INFORMATION
  Report Type: 
  Country: None (occurrence: None)
  Receive Date: 20050729
  Receipt Date: 20040525
  Transmission Date: 20060218
  Serious: Yes (Life-Threatening, Hospitalization)
  Sender: FDA-Public Use
  Company Number: M2004.0683

PATIENT
  Age: 32 Year
  Sex: Male

DRUGS (5)
  1. RIFAMPICIN [Suspect]
     Indication: PULMONARY TUBERCULOSIS
     Dosage: 600MG QD, ORAL
     Route: 048
  2. PYRAZINAMIDE [Suspect]
     Indication: PULMONARY TUBERCULOSIS
     Dosage: 1000MG, ORAL
     Route: 048
  3. ISONIAZID [Suspect]
     Indication: PULMONARY TUBERCULOSIS
     Dosage: 300 MG, QD; ORAL
     Route: 048
  4. ETHAMBUTOL HYDROCHLORIDE [Concomitant]
  5. PYRIDOXINE HCL [Concomitant]

REACTIONS (1)
  - HYPERSENSITIVITY [None]
